FAERS Safety Report 21756689 (Version 3)
Quarter: 2023Q1

REPORT INFORMATION
  Report Type: Spontaneous
  Country: US (occurrence: None)
  Receive Date: 20221220
  Receipt Date: 20230227
  Transmission Date: 20230417
  Serious: No
  Sender: FDA-Public Use
  Company Number: 2022A381299

PATIENT
  Age: 718 Month
  Sex: Female
  Weight: 74.8 kg

DRUGS (2)
  1. BYDUREON BCISE [Suspect]
     Active Substance: EXENATIDE
     Indication: Type 2 diabetes mellitus
     Route: 058
  2. BYDUREON [Suspect]
     Active Substance: EXENATIDE
     Indication: Type 2 diabetes mellitus
     Dosage: POWDER AND SOLVENT FOR PROLONGED-RELEASE SUSPENSION FOR INJECTION UNKNOWN

REACTIONS (6)
  - Visual impairment [Unknown]
  - Injection site pain [Unknown]
  - Device malfunction [Unknown]
  - Extra dose administered [Unknown]
  - Product dose omission issue [Unknown]
  - Product use issue [Unknown]

NARRATIVE: CASE EVENT DATE: 20221001
